FAERS Safety Report 10060468 (Version 1)
Quarter: 2014Q2

REPORT INFORMATION
  Report Type: Spontaneous
  Country: FR (occurrence: FR)
  Receive Date: 20140404
  Receipt Date: 20140404
  Transmission Date: 20141212
  Serious: Yes (Hospitalization)
  Sender: FDA-Public Use
  Company Number: FR-SA-2014SA039866

PATIENT
  Age: 75 Year
  Sex: Female

DRUGS (15)
  1. LANTUS [Suspect]
     Indication: INSULIN-REQUIRING TYPE 2 DIABETES MELLITUS
     Dosage: DOSE:15 UNIT(S)
     Route: 058
  2. DOLIPRANE [Suspect]
     Route: 048
  3. VICTOZA [Suspect]
     Indication: INSULIN-REQUIRING TYPE 2 DIABETES MELLITUS
     Route: 058
     Dates: start: 2013
  4. CELEBREX [Suspect]
     Dosage: FREQUENCY - 2 DAYS
     Route: 048
     Dates: end: 20140225
  5. CRESTOR [Suspect]
     Route: 048
  6. ATHYMIL [Suspect]
     Route: 048
  7. AMLOR [Suspect]
     Route: 048
  8. RENITEC [Suspect]
     Route: 048
  9. DIAMICRON [Suspect]
     Route: 048
  10. GLUCOPHAGE [Suspect]
     Dosage: FREQUENCY - 2 DAYS
     Route: 048
  11. SEROPLEX [Suspect]
     Route: 048
  12. CERIS [Suspect]
     Route: 048
  13. ZOPICLONE [Suspect]
     Route: 048
  14. KARDEGIC [Suspect]
     Route: 048
  15. OMEPRAZOLE [Suspect]
     Route: 048

REACTIONS (1)
  - Pancreatitis acute [Recovered/Resolved]
